FAERS Safety Report 9687998 (Version 2)
Quarter: 2013Q4

REPORT INFORMATION
  Report Type: Spontaneous
  Country: CN (occurrence: None)
  Receive Date: 20131112
  Receipt Date: 20131125
  Transmission Date: 20140711
  Serious: Yes (Hospitalization)
  Sender: FDA-Public Use
  Company Number: SYM-2013-12675

PATIENT
  Age: 63 Year
  Sex: Male

DRUGS (4)
  1. 5 FU [Suspect]
     Indication: COLORECTAL CANCER METASTATIC
     Dosage: 632 MG, EVERY OTHER WEEK, INTRAVENOUS BOLUS
     Route: 040
     Dates: start: 20130918, end: 20130918
  2. IRINOTECAN (IRINOTECAN) [Suspect]
     Indication: COLORECTAL CANCER METASTATIC
     Dosage: 284 MG, EVERY OTHER WEEK, INTRAVENOUS DRIP
     Route: 041
     Dates: start: 20130918, end: 20130918
  3. LEUCOVORIN (FOLINIC ACID) (SOLUTION FOR INFUSION) (FOLINIC ACID) [Suspect]
     Indication: COLORECTAL CANCER METASTATIC
     Dosage: 632 MG/M2, EVERY OTHER WEEK, INTRAVENOUS DRIP
     Route: 041
     Dates: start: 20130918, end: 20130918
  4. BLINDED THERAPY (OTHER THERAPEUTIC PRODUCTS) (SOLUTION FOR INFUSION) (NULL) [Suspect]
     Indication: COLORECTAL CANCER METASTATIC
     Dosage: 204 MG, EVERY OTHE WEEK, INTRAVENOUS DRIP
     Route: 041
     Dates: start: 20130918, end: 20130918

REACTIONS (5)
  - Intestinal obstruction [None]
  - Neutrophil count increased [None]
  - Haemoglobin decreased [None]
  - Pyrexia [None]
  - Urticaria [None]
